FAERS Safety Report 18691735 (Version 4)
Quarter: 2023Q1

REPORT INFORMATION
  Report Type: Report from Study
  Country: KR (occurrence: KR)
  Receive Date: 20210102
  Receipt Date: 20230223
  Transmission Date: 20230417
  Serious: Yes (Death, Hospitalization)
  Sender: FDA-Public Use
  Company Number: KR-CELLTRION INC.-2020KR034625

PATIENT

DRUGS (15)
  1. HERZUMA [Suspect]
     Active Substance: TRASTUZUMAB-PKRB
     Indication: Bile duct cancer
     Dosage: 352 MG (6 MG/KG), CYCLE 1 (100% DOSE)
     Route: 042
     Dates: start: 20201210, end: 20201212
  2. HERZUMA [Suspect]
     Active Substance: TRASTUZUMAB-PKRB
     Dosage: 233 MG (4 MG/KG), CYCLE 2 (LEVEL 1 REDUCTION DOSE)
     Route: 042
     Dates: start: 20201224, end: 20201226
  3. OXALIPLATIN [Suspect]
     Active Substance: OXALIPLATIN
     Indication: Bile duct cancer
     Dosage: 139 MG (85 MG/M2), CYCLE 1 (100% DOSE)
     Dates: start: 20201210, end: 20201212
  4. OXALIPLATIN [Suspect]
     Active Substance: OXALIPLATIN
     Dosage: 107 MG (65 MG/M2), CYCLE 2 (LEVEL 1 REDUCTION DOSE)
     Dates: start: 20201224, end: 20201226
  5. FLUOROURACIL [Suspect]
     Active Substance: FLUOROURACIL
     Indication: Bile duct cancer
     Dosage: BOLUS 660 MG (400 MG/M2), CYCLE 1 (100% DOSE)
     Dates: start: 20201210, end: 20201212
  6. FLUOROURACIL [Suspect]
     Active Substance: FLUOROURACIL
     Dosage: 3960 MG (2400 MG/M2) INFUSION, CYCLE 1 (100% DOSE)
     Dates: start: 20201210, end: 20201212
  7. FLUOROURACIL [Suspect]
     Active Substance: FLUOROURACIL
     Dosage: 3140 MG (1900 MG/M2) INFUSION, CYCLE 2 (LEVEL 1 REDUCTION DOSE)
     Dates: start: 20201224, end: 20201226
  8. LEUCOVORIN [Suspect]
     Active Substance: LEUCOVORIN
     Indication: Bile duct cancer
     Dosage: 329 MG (200 MG/M2), CYCLE 1 (100% DOSE)
     Dates: start: 20201210, end: 20201212
  9. LEUCOVORIN [Suspect]
     Active Substance: LEUCOVORIN
     Dosage: 329 MG (200 MG/M2)
     Dates: start: 20201224, end: 20201226
  10. MEGACE [Concomitant]
     Active Substance: MEGESTROL ACETATE
     Indication: Constipation
     Dosage: 10 ML, QD
     Route: 048
     Dates: start: 20201202
  11. GLUCOPHAGE [Concomitant]
     Active Substance: METFORMIN HYDROCHLORIDE
     Indication: Diabetes mellitus
     Dosage: 250 MG, QD
     Route: 048
     Dates: start: 20201207
  12. URSODIOL [Concomitant]
     Active Substance: URSODIOL
     Indication: Prophylaxis
     Dosage: 200 MG, QD
     Route: 048
     Dates: start: 20191118
  13. BANAN [Concomitant]
     Active Substance: CEFPODOXIME PROXETIL
     Indication: Prophylaxis
     Dosage: 200 MG, BID
     Route: 048
     Dates: start: 20201212
  14. METOCLOPRAMIDE HYDROCHLORIDE [Concomitant]
     Active Substance: METOCLOPRAMIDE HYDROCHLORIDE
     Indication: Prophylaxis
     Dosage: 5 MG, TID
     Route: 048
     Dates: start: 20201212
  15. BISACODYL [Concomitant]
     Active Substance: BISACODYL
     Indication: Constipation
     Dosage: 10 MG, QD
     Route: 048
     Dates: start: 20201218, end: 20201226

REACTIONS (3)
  - Death [Fatal]
  - Pyrexia [Recovered/Resolved]
  - Off label use [Unknown]

NARRATIVE: CASE EVENT DATE: 20201215
